FAERS Safety Report 12915624 (Version 2)
Quarter: 2017Q1

REPORT INFORMATION
  Report Type: Spontaneous
  Country: US (occurrence: US)
  Receive Date: 20161106
  Receipt Date: 20170216
  Transmission Date: 20170428
  Serious: Yes (Other)
  Sender: FDA-Public Use
  Company Number: US-RELYPSA-RLY2016001926

PATIENT
  Sex: Male

DRUGS (20)
  1. MULTIVITAMINS [Concomitant]
     Active Substance: VITAMINS
  2. GLIPIZIDE. [Concomitant]
     Active Substance: GLIPIZIDE
  3. RANITIDINE HCL [Concomitant]
     Active Substance: RANITIDINE HYDROCHLORIDE
  4. VELTASSA [Suspect]
     Active Substance: PATIROMER
     Indication: HYPERKALAEMIA
     Dosage: 8.4 G, QD
     Route: 048
  5. VELTASSA [Suspect]
     Active Substance: PATIROMER
     Dosage: 16.8 G, QD
     Route: 048
     Dates: start: 20160401, end: 2016
  6. GABAPENTIN. [Concomitant]
     Active Substance: GABAPENTIN
  7. LOSARTAN POTASSIUM. [Concomitant]
     Active Substance: LOSARTAN POTASSIUM
  8. ALPRAZOLAM. [Concomitant]
     Active Substance: ALPRAZOLAM
  9. CALCIUM + VITAMIN D [Concomitant]
     Active Substance: CALCIUM\VITAMIN D
  10. PROAIR HFA [Concomitant]
     Active Substance: ALBUTEROL SULFATE
  11. ASPIRIN. [Concomitant]
     Active Substance: ASPIRIN
  12. CARDURA [Concomitant]
     Active Substance: DOXAZOSIN MESYLATE
  13. FLONASE [Concomitant]
     Active Substance: FLUTICASONE PROPIONATE
  14. PLAVIX [Concomitant]
     Active Substance: CLOPIDOGREL BISULFATE
  15. VELTASSA [Suspect]
     Active Substance: PATIROMER
     Dosage: 8.4 G, QOD
     Route: 048
     Dates: end: 2016
  16. ALLOPURINOL. [Concomitant]
     Active Substance: ALLOPURINOL
  17. NITROSTAT [Concomitant]
     Active Substance: NITROGLYCERIN
  18. PRAVASTATIN SODIUM. [Concomitant]
     Active Substance: PRAVASTATIN SODIUM
  19. ZOLOFT [Concomitant]
     Active Substance: SERTRALINE HYDROCHLORIDE
  20. METOPROLOL TARTRATE. [Concomitant]
     Active Substance: METOPROLOL TARTRATE

REACTIONS (3)
  - Hyperkalaemia [Unknown]
  - Inappropriate schedule of drug administration [Recovered/Resolved]
  - Diarrhoea [Not Recovered/Not Resolved]

NARRATIVE: CASE EVENT DATE: 2016
